FAERS Safety Report 8758146 (Version 1)
Quarter: 2012Q4

REPORT INFORMATION
  Report Type: 
  Country: US (occurrence: US)
  Receive Date: 20120829
  Receipt Date: 20120829
  Transmission Date: 20130627
  Serious: Yes (Hospitalization, Other)
  Sender: FDA-Public Use
  Company Number: US-UCBSA-064234

PATIENT
  Sex: Female
  Weight: 59 kg

DRUGS (5)
  1. VIMPAT [Suspect]
     Indication: CONVULSION
     Dates: start: 201111
  2. TRILEPTAL [Concomitant]
     Dosage: 600 MG IN MORNING AND 900 MG AT NIGHT
  3. SERTRALINE [Concomitant]
     Indication: MOOD SWINGS
  4. SEROQUEL [Concomitant]
  5. GEODON [Concomitant]

REACTIONS (2)
  - Convulsion [Unknown]
  - Weight decreased [Unknown]
